FAERS Safety Report 8126960-3 (Version None)
Quarter: 2012Q1

REPORT INFORMATION
  Report Type: 
  Country: None (occurrence: None)
  Receive Date: 20120210
  Receipt Date: 20120202
  Transmission Date: 20120608
  Serious: Yes (Other)
  Sender: FDA-Public Use
  Company Number: CO-JNJFOC-20120200857

PATIENT
  Sex: Male
  Weight: 48 kg

DRUGS (5)
  1. HYDROCHLOROTHIAZIDE [Concomitant]
     Indication: HYPERTENSION
     Route: 048
     Dates: start: 20060101
  2. CARBIDOPA + LEVODOPA [Concomitant]
     Indication: PARKINSON'S DISEASE
     Dosage: +#65279;DOSE: 50/12.5 MILLIGRAMS
     Route: 048
     Dates: start: 20111001
  3. ABIRATERONE ACETATE [Suspect]
     Indication: PROSTATE CANCER METASTATIC
     Route: 048
     Dates: start: 20111130, end: 20120120
  4. ABIRATERONE ACETATE [Suspect]
     Route: 048
     Dates: start: 20120124
  5. VERAPAMIL [Concomitant]
     Indication: HYPERTENSION
     Route: 048
     Dates: start: 20060101

REACTIONS (5)
  - BRADYKINESIA [None]
  - FATIGUE [None]
  - AMNESIA [None]
  - MUSCULAR WEAKNESS [None]
  - MUSCLE RIGIDITY [None]
